FAERS Safety Report 17774137 (Version 1)
Quarter: 2020Q2

REPORT INFORMATION
  Report Type: Spontaneous
  Country: US (occurrence: US)
  Receive Date: 20200513
  Receipt Date: 20200513
  Transmission Date: 20200714
  Serious: No
  Sender: FDA-Public Use
  Company Number: US-JNJFOC-20200437634

PATIENT
  Sex: Female

DRUGS (1)
  1. WOMENS ROGAINE UNSCENTED [Suspect]
     Active Substance: MINOXIDIL
     Indication: ALOPECIA
     Dosage: 1/2 CAPFUL
     Route: 061
     Dates: start: 202004, end: 202004

REACTIONS (2)
  - Expired product administered [Unknown]
  - Hair texture abnormal [Recovered/Resolved]

NARRATIVE: CASE EVENT DATE: 202004
